FAERS Safety Report 6104101-1 (Version None)
Quarter: 2009Q1

REPORT INFORMATION
  Report Type: 
  Country: None (occurrence: None)
  Receive Date: 20090305
  Receipt Date: 20090224
  Transmission Date: 20090719
  Serious: Yes (Life-Threatening, Hospitalization)
  Sender: FDA-Public Use
  Company Number: FR-TEVA-186138ISR

PATIENT
  Sex: Male

DRUGS (5)
  1. FLUOROURACIL [Suspect]
     Indication: COLORECTAL CANCER
     Route: 042
     Dates: start: 20080917
  2. FLUOROURACIL [Suspect]
     Dates: start: 20080917
  3. AG-013,736(AXITINIB) [Suspect]
     Indication: COLORECTAL CANCER
     Route: 048
     Dates: start: 20080917
  4. IRINOTECAN HYDROCHLORIDE [Suspect]
     Indication: COLORECTAL CANCER
     Route: 042
  5. FOLINIC ACID [Suspect]
     Indication: COLORECTAL CANCER
     Route: 042
     Dates: start: 20080917

REACTIONS (2)
  - COLONIC OBSTRUCTION [None]
  - GENERAL PHYSICAL HEALTH DETERIORATION [None]
